FAERS Safety Report 24278991 (Version 1)
Quarter: 2024Q3

REPORT INFORMATION
  Report Type: Spontaneous
  Country: CN (occurrence: CN)
  Receive Date: 20240903
  Receipt Date: 20240903
  Transmission Date: 20241016
  Serious: Yes (Disabling, Other)
  Sender: PFIZER
  Company Number: CN-PFIZER INC-PV202400113465

PATIENT
  Age: 51 Year
  Sex: Male
  Weight: 61 kg

DRUGS (4)
  1. CYTARABINE [Suspect]
     Active Substance: CYTARABINE
     Indication: Mantle cell lymphoma
     Dosage: 4.9 G, 2X/DAY
     Route: 041
     Dates: start: 20240813, end: 20240814
  2. METHOTREXATE SODIUM [Suspect]
     Active Substance: METHOTREXATE SODIUM
     Indication: Mantle cell lymphoma
     Dosage: 1.65 G, 1X/DAY
     Route: 041
     Dates: start: 20240812, end: 20240812
  3. SODIUM CHLORIDE [Concomitant]
     Active Substance: SODIUM CHLORIDE
     Indication: Mantle cell lymphoma
     Dosage: 500 ML, 2X/DAY
     Route: 041
     Dates: start: 20240813, end: 20240814
  4. DEXTROSE [Concomitant]
     Active Substance: DEXTROSE\DEXTROSE MONOHYDRATE
     Indication: Mantle cell lymphoma
     Dosage: 500 ML, 1X/DAY
     Route: 041
     Dates: start: 20240812, end: 20240812

REACTIONS (5)
  - White blood cell count decreased [Recovering/Resolving]
  - Granulocyte count decreased [Recovering/Resolving]
  - Haemoglobin decreased [Recovering/Resolving]
  - Myelosuppression [Recovering/Resolving]
  - Off label use [Unknown]

NARRATIVE: CASE EVENT DATE: 20240801
